FAERS Safety Report 7786756-9 (Version None)
Quarter: 2011Q3

REPORT INFORMATION
  Report Type: 
  Country: None (occurrence: None)
  Receive Date: 20110929
  Receipt Date: 20110928
  Transmission Date: 20111222
  Serious: Yes (Other)
  Sender: FDA-Public Use
  Company Number: JP-PFIZER INC-2011231237

PATIENT
  Sex: Female

DRUGS (1)
  1. LIPITOR [Suspect]
     Dosage: UNK
     Route: 048

REACTIONS (4)
  - MYOCARDIAL INFARCTION [None]
  - MYALGIA [None]
  - BLOOD PRESSURE INCREASED [None]
  - BLOOD CREATINE PHOSPHOKINASE INCREASED [None]
